FAERS Safety Report 24288216 (Version 1)
Quarter: 2024Q3

REPORT INFORMATION
  Report Type: Report from Study
  Country: US (occurrence: US)
  Receive Date: 20240905
  Receipt Date: 20240905
  Transmission Date: 20241017
  Serious: Yes (Other)
  Sender: ABBVIE
  Company Number: US-ABBVIE-5906312

PATIENT
  Sex: Female

DRUGS (1)
  1. SKYRIZI [Suspect]
     Active Substance: RISANKIZUMAB-RZAA
     Indication: Psoriasis
     Route: 058
     Dates: start: 20240319

REACTIONS (5)
  - Systemic lupus erythematosus [Recovering/Resolving]
  - Psoriatic arthropathy [Recovering/Resolving]
  - Ankylosing spondylitis [Recovering/Resolving]
  - Sjogren^s syndrome [Recovering/Resolving]
  - Mixed connective tissue disease [Recovering/Resolving]

NARRATIVE: CASE EVENT DATE: 20240101
